FAERS Safety Report 11302422 (Version 1)
Quarter: 2015Q3

REPORT INFORMATION
  Report Type: Spontaneous
  Country: None (occurrence: None)
  Receive Date: 20150723
  Receipt Date: 20150723
  Transmission Date: 20151125
  Serious: Yes (Hospitalization, Other)
  Sender: FDA-Public Use
  Company Number: None

PATIENT
  Age: 57 Year
  Sex: Female
  Weight: 76 kg

DRUGS (6)
  1. CALCIUM [Concomitant]
     Active Substance: CALCIUM
  2. SERTRALINE [Concomitant]
     Active Substance: SERTRALINE HYDROCHLORIDE
  3. DENOSUMAB [Suspect]
     Active Substance: DENOSUMAB
     Indication: BREAST CANCER METASTATIC
     Dosage: GIVEN INTO/UNDER THE SKIN
     Dates: start: 20150722, end: 20150722
  4. THYROXINE [Concomitant]
     Active Substance: LEVOTHYROXINE
  5. LOTROXELE [Concomitant]
  6. OXYCONTIN [Concomitant]
     Active Substance: OXYCODONE HYDROCHLORIDE

REACTIONS (6)
  - Paraesthesia [None]
  - Hypoaesthesia [None]
  - Malaise [None]
  - Loose tooth [None]
  - Metastases to spine [None]
  - Back pain [None]

NARRATIVE: CASE EVENT DATE: 20150717
